FAERS Safety Report 8113626 (Version 12)
Quarter: 2013Q3

REPORT INFORMATION
  Report Type: Spontaneous
  Country: US (occurrence: None)
  Receive Date: 20110810
  Receipt Date: 20130801
  Transmission Date: 20140515
  Serious: Yes (Life-Threatening, Hospitalization, Other)
  Sender: FDA-Public Use
  Company Number: 2011029448

PATIENT
  Sex: Female
  Weight: 95.26 kg

DRUGS (12)
  1. BERINERT [Suspect]
     Indication: HEREDITARY ANGIOEDEMA
     Dosage: , INTRAVENOUS (NOT OTHERWISE SPECIFIED)
     Route: 042
     Dates: start: 20110630, end: 20110712
  2. PEPCID [Concomitant]
  3. BENADRYL [Concomitant]
  4. ACETAMINOPHEN (PARACETAMOL) [Concomitant]
  5. VICODIN [Concomitant]
  6. ZYRTEC [Concomitant]
  7. VITAMIN D (ERGOCALCIFEROL) [Concomitant]
  8. SUDAFED 12 HOUR [Concomitant]
  9. PREDNISONE (PREDNISONE) [Concomitant]
  10. HYDROXYZINE HCL (HYDROXYZINE) [Concomitant]
  11. IBUPROFEN (IBUPROFEN) [Concomitant]
  12. KEFLEX (CEFALEXIN) [Concomitant]

REACTIONS (17)
  - Jugular vein thrombosis [None]
  - Subclavian vein thrombosis [None]
  - Axillary vein thrombosis [None]
  - Deep vein thrombosis [None]
  - Abdominal pain [None]
  - Anaemia [None]
  - Factitious disorder [None]
  - Munchausen^s syndrome [None]
  - Sphincter of Oddi dysfunction [None]
  - Drug ineffective [None]
  - Off label use [None]
  - Hepatic enzyme increased [None]
  - Anaemia [None]
  - Respiratory arrest [None]
  - Apnoea [None]
  - Drug ineffective for unapproved indication [None]
  - Drug hypersensitivity [None]
